FAERS Safety Report 6084724-9 (Version None)
Quarter: 2009Q1

REPORT INFORMATION
  Report Type: 
  Country: None (occurrence: None)
  Receive Date: 20090217
  Receipt Date: 20090130
  Transmission Date: 20090719
  Serious: Yes (Hospitalization)
  Sender: FDA-Public Use
  Company Number: 8042751

PATIENT
  Age: 50 Year
  Sex: Female
  Weight: 54 kg

DRUGS (4)
  1. LEVETIRACETAM [Suspect]
     Indication: EPILEPSY
     Dosage: PO
     Route: 048
     Dates: start: 20050101, end: 20081225
  2. CLOBAZAM [Concomitant]
  3. LAMOTRIGINE [Concomitant]
  4. ZONISAMIDE [Concomitant]

REACTIONS (4)
  - HYPERACUSIS [None]
  - HYPERAESTHESIA [None]
  - PHOTOSENSITIVITY REACTION [None]
  - TEMPERATURE INTOLERANCE [None]
